FAERS Safety Report 9050724 (Version 1)
Quarter: 2013Q1

REPORT INFORMATION
  Report Type: Spontaneous
  Country: JP (occurrence: JP)
  Receive Date: 20130205
  Receipt Date: 20130205
  Transmission Date: 20140127
  Serious: Yes (Hospitalization)
  Sender: FDA-Public Use
  Company Number: JP-SANOFI-AVENTIS-2013SA008699

PATIENT
  Age: 80 Year
  Sex: Male

DRUGS (11)
  1. KAYEXALATE [Suspect]
     Indication: HYPERKALAEMIA
     Dosage: DRY SYRUP
     Route: 048
     Dates: start: 20120719
  2. CALCIUM POLYSTYRENE SULFONATE [Concomitant]
     Indication: HYPERKALAEMIA
     Route: 048
     Dates: end: 20120718
  3. BAYASPIRIN [Concomitant]
     Route: 048
  4. LASIX [Concomitant]
     Route: 048
  5. MEVALOTIN [Concomitant]
     Route: 048
  6. ADALAT L [Concomitant]
     Route: 048
  7. ARTIST [Concomitant]
     Route: 048
  8. CARDENALIN [Concomitant]
     Route: 048
  9. AMLODIPINE BESILATE [Concomitant]
     Route: 048
  10. DIOVANE [Concomitant]
     Route: 048
  11. JU-KAMA [Concomitant]
     Route: 048

REACTIONS (1)
  - Ileus [Recovered/Resolved]
